FAERS Safety Report 4726213-7 (Version None)
Quarter: 2005Q3

REPORT INFORMATION
  Report Type: 
  Country: None (occurrence: None)
  Receive Date: 20050725
  Receipt Date: 20050725
  Transmission Date: 20060218
  Serious: Yes (Disabling)
  Sender: FDA-Public Use
  Company Number: None

PATIENT
  Age: 50 Year
  Sex: Male
  Weight: 86 kg

DRUGS (3)
  1. VINCRISTINE [Suspect]
     Indication: DEAFNESS
     Dosage: 2 MG CYCLE 12 MONTHLY PR
     Dates: start: 20040330, end: 20050529
  2. DEXAMETHASONE [Concomitant]
  3. MERCAPTOPURINE [Concomitant]

REACTIONS (2)
  - DEAFNESS [None]
  - TINNITUS [None]
